FAERS Safety Report 16358536 (Version 1)
Quarter: 2020Q3

REPORT INFORMATION
  Report Type: Spontaneous
  Country: US (occurrence: US)
  Receive Date: 20190527
  Receipt Date: 20190527
  Transmission Date: 20201104
  Serious: Yes (Hospitalization, Other)
  Sender: FDA-Public Use
  Company Number: US-TEVA-2019-US-1055976

PATIENT
  Age: 60 Year
  Sex: Female

DRUGS (8)
  1. IBANDRONIC ACID. [Suspect]
     Active Substance: IBANDRONIC ACID
     Indication: OSTEOPENIA
  2. FOSAMAX [Suspect]
     Active Substance: ALENDRONATE SODIUM
     Indication: OSTEOPOROSIS
     Dosage: 70 MILLIGRAM DAILY;
     Route: 048
     Dates: start: 20050811, end: 20080220
  3. VITAMINS NOS [Concomitant]
     Active Substance: VITAMINS
  4. FOSAMAX [Suspect]
     Active Substance: ALENDRONATE SODIUM
     Indication: OSTEOPENIA
     Dosage: 70 MILLIGRAM DAILY;
     Route: 048
     Dates: start: 20020603, end: 20041002
  5. ACTONEL [Suspect]
     Active Substance: RISEDRONATE SODIUM
     Indication: OSTEOPENIA
     Dosage: 150 MILLIGRAM DAILY;
     Route: 048
     Dates: start: 20100217, end: 20100317
  6. IBANDRONIC ACID. [Suspect]
     Active Substance: IBANDRONIC ACID
     Indication: OSTEOPOROSIS
     Route: 048
     Dates: start: 20100607, end: 201103
  7. ALENDRONAT [Suspect]
     Active Substance: ALENDRONATE SODIUM
     Indication: OSTEOPENIA
     Dosage: 70 MILLIGRAM DAILY;
     Route: 048
     Dates: start: 20080220, end: 20090803
  8. CALCIUM [Concomitant]
     Active Substance: CALCIUM
     Route: 065

REACTIONS (4)
  - Emotional distress [Unknown]
  - Anxiety [Unknown]
  - Femur fracture [Unknown]
  - Low turnover osteopathy [Unknown]

NARRATIVE: CASE EVENT DATE: 20111114
